FAERS Safety Report 13835340 (Version 1)
Quarter: 2017Q3

REPORT INFORMATION
  Report Type: Spontaneous
  Country: US (occurrence: US)
  Receive Date: 20170804
  Receipt Date: 20170804
  Transmission Date: 20171127
  Serious: Yes (Other)
  Sender: FDA-Public Use
  Company Number: US-BRISTOL-MYERS SQUIBB COMPANY-BMS-2017-068357

PATIENT
  Sex: Male

DRUGS (6)
  1. METOPROLOL. [Suspect]
     Active Substance: METOPROLOL
     Indication: PRODUCT USED FOR UNKNOWN INDICATION
     Route: 065
  2. SULFASALAZINE. [Suspect]
     Active Substance: SULFASALAZINE
     Indication: PRODUCT USED FOR UNKNOWN INDICATION
     Dosage: 500 MG, BID
     Route: 065
  3. AMIODARONE [Suspect]
     Active Substance: AMIODARONE
     Indication: PRODUCT USED FOR UNKNOWN INDICATION
     Route: 065
  4. FUROSEMIDE. [Suspect]
     Active Substance: FUROSEMIDE
     Indication: PRODUCT USED FOR UNKNOWN INDICATION
     Dosage: 1 TAB, PRN
     Route: 065
  5. APIXABAN [Suspect]
     Active Substance: APIXABAN
     Indication: PRODUCT USED FOR UNKNOWN INDICATION
     Route: 065
  6. FENTANYL. [Suspect]
     Active Substance: FENTANYL
     Indication: PRODUCT USED FOR UNKNOWN INDICATION
     Dosage: 1 DF, EVERY 72 HOURS
     Route: 065

REACTIONS (24)
  - Dry eye [Unknown]
  - Ocular hyperaemia [Unknown]
  - Depression [Unknown]
  - Blood creatinine increased [Unknown]
  - Dyspnoea [Unknown]
  - Foot deformity [Unknown]
  - Bone development abnormal [Unknown]
  - Dizziness [Unknown]
  - Oedema peripheral [Unknown]
  - Joint swelling [Unknown]
  - C-reactive protein increased [Unknown]
  - Deafness [Unknown]
  - Back pain [Unknown]
  - Muscular weakness [Unknown]
  - Hypoaesthesia [Unknown]
  - Red cell distribution width increased [Unknown]
  - Arthralgia [Unknown]
  - Fatigue [Unknown]
  - Nodal osteoarthritis [Unknown]
  - Bradycardia [Unknown]
  - Musculoskeletal stiffness [Unknown]
  - Dry mouth [Unknown]
  - Hypertension [Unknown]
  - Synovitis [Unknown]
